FAERS Safety Report 18317197 (Version 1)
Quarter: 2020Q3

REPORT INFORMATION
  Report Type: Spontaneous
  Country: US (occurrence: US)
  Receive Date: 20200928
  Receipt Date: 20200928
  Transmission Date: 20201103
  Serious: Yes (Other)
  Sender: FDA-Public Use
  Company Number: US-AUROBINDO-AUR-APL-2012-03764

PATIENT
  Age: 21 Year
  Sex: Female

DRUGS (2)
  1. CILEST [Concomitant]
     Active Substance: ETHINYL ESTRADIOL\NORGESTIMATE
     Indication: PRODUCT USED FOR UNKNOWN INDICATION
     Dosage: UNK
     Route: 016
  2. MINOCYCLINE [Suspect]
     Active Substance: MINOCYCLINE HYDROCHLORIDE
     Indication: ACNE
     Dosage: UNK
     Route: 065

REACTIONS (15)
  - Polyuria [Recovering/Resolving]
  - Myalgia [Recovering/Resolving]
  - Polyarteritis nodosa [Recovering/Resolving]
  - Pharyngitis [Recovering/Resolving]
  - Fatigue [Recovering/Resolving]
  - Weight decreased [Recovering/Resolving]
  - Inflammatory marker increased [Recovering/Resolving]
  - Salt craving [Recovering/Resolving]
  - Hyponatraemia [Recovering/Resolving]
  - Hypokalaemia [Recovering/Resolving]
  - Tachycardia [Recovering/Resolving]
  - Headache [Recovering/Resolving]
  - Contusion [Recovering/Resolving]
  - Hypertension [Recovering/Resolving]
  - Dyspnoea exertional [Recovering/Resolving]
